FAERS Safety Report 6567734-4 (Version None)
Quarter: 2010Q1

REPORT INFORMATION
  Report Type: 
  Country: None (occurrence: None)
  Receive Date: 20100203
  Receipt Date: 20100201
  Transmission Date: 20100710
  Serious: Yes (Death)
  Sender: FDA-Public Use
  Company Number: FI-WYE-G04613409

PATIENT
  Sex: Male

DRUGS (1)
  1. RELISTOR [Suspect]
     Indication: CONSTIPATION
     Dosage: 1 DOSE EVERY 1 TOT
     Route: 058

REACTIONS (2)
  - DEATH [None]
  - RASH GENERALISED [None]
